FAERS Safety Report 6137826-2 (Version None)
Quarter: 2009Q1

REPORT INFORMATION
  Report Type: 
  Country: None (occurrence: None)
  Receive Date: 20090331
  Receipt Date: 20090227
  Transmission Date: 20090719
  Serious: No
  Sender: FDA-Public Use
  Company Number: US-BAYER-200910687BCC

PATIENT
  Age: 89 Year
  Sex: Male
  Weight: 66 kg

DRUGS (1)
  1. ALEVE [Suspect]
     Indication: ARTHRITIS
     Dosage: TOTAL DAILY DOSE: 220 MG  UNIT DOSE: 220 MG
     Route: 048
     Dates: start: 20090225, end: 20090226

REACTIONS (2)
  - ABDOMINAL PAIN UPPER [None]
  - HYPERHIDROSIS [None]
